FAERS Safety Report 8351998-0 (Version None)
Quarter: 2012Q2

REPORT INFORMATION
  Report Type: 
  Country: None (occurrence: None)
  Receive Date: 20120511
  Receipt Date: 20120503
  Transmission Date: 20120825
  Serious: Yes (Hospitalization)
  Sender: FDA-Public Use
  Company Number: US-BAYER-2011-116830

PATIENT
  Age: 23 Year
  Sex: Female
  Weight: 116.55 kg

DRUGS (7)
  1. ZITHROMAX [Concomitant]
     Dosage: 500 MG, QD FOR 3 DAYS
     Dates: start: 20031216
  2. ALBUTEROL [Concomitant]
     Dosage: 2 PUFFS 4 TIMES A DAY, AS NEEDED
     Dates: start: 20031129
  3. VITAMIN TAB [Concomitant]
  4. ZITHROMAX [Concomitant]
     Dosage: 250 MG, UNK
     Dates: start: 20031129
  5. YASMIN [Suspect]
     Dosage: UNK
     Dates: start: 20030701, end: 20040101
  6. PREDNISONE [Concomitant]
     Dosage: 20 MG, QD ONE TABLET FOR 5 DAYS
     Dates: start: 20031129
  7. VICODIN [Concomitant]
     Dosage: 5/500 TABLET, 1-2 TABLETS EVERY 4 HOURS AS NEEDED.
     Dates: start: 20040114

REACTIONS (7)
  - EMOTIONAL DISTRESS [None]
  - ANHEDONIA [None]
  - PULMONARY EMBOLISM [None]
  - PAIN [None]
  - INJURY [None]
  - GENERAL PHYSICAL HEALTH DETERIORATION [None]
  - ANXIETY [None]
